FAERS Safety Report 10436788 (Version 1)
Quarter: 2014Q3

REPORT INFORMATION
  Report Type: Spontaneous
  Country: US (occurrence: US)
  Receive Date: 20140908
  Receipt Date: 20140908
  Transmission Date: 20150326
  Serious: No
  Sender: FDA-Public Use
  Company Number: US-BRISTOL-MYERS SQUIBB COMPANY-19547744

PATIENT
  Age: 61 Year
  Sex: Female

DRUGS (3)
  1. LEXAPRO [Suspect]
     Active Substance: ESCITALOPRAM OXALATE
  2. ABILIFY [Suspect]
     Active Substance: ARIPIPRAZOLE
  3. LAMICTAL [Suspect]
     Active Substance: LAMOTRIGINE

REACTIONS (1)
  - Poor quality sleep [Unknown]
